FAERS Safety Report 9159324 (Version 1)
Quarter: 2013Q1

REPORT INFORMATION
  Report Type: Spontaneous
  Country: CO (occurrence: CO)
  Receive Date: 20130313
  Receipt Date: 20130313
  Transmission Date: 20140127
  Serious: Yes (Hospitalization, Other)
  Sender: FDA-Public Use
  Company Number: CO-JNJFOC-20111209653

PATIENT
  Age: 39 None
  Sex: Male

DRUGS (3)
  1. INTELENCE [Suspect]
     Indication: HIV INFECTION
     Route: 065
  2. EMTRICITABINE [Suspect]
     Indication: HIV INFECTION
     Route: 065
  3. TENOFOVIR [Suspect]
     Indication: HIV INFECTION
     Route: 065

REACTIONS (2)
  - Pancreatitis acute [Recovering/Resolving]
  - Abdominal abscess [Unknown]
